FAERS Safety Report 19517791 (Version 1)
Quarter: 2021Q3

REPORT INFORMATION
  Report Type: Other
  Country: GB (occurrence: GB)
  Receive Date: 20210712
  Receipt Date: 20210712
  Transmission Date: 20211014
  Serious: No
  Sender: FDA-Public Use
  Company Number: GB-LUPIN PHARMACEUTICALS INC.-2021-10952

PATIENT
  Age: 72 Year
  Sex: Female
  Weight: 78 kg

DRUGS (11)
  1. AMITRIPTYLINE HYDROCHLORIDE. [Concomitant]
     Active Substance: AMITRIPTYLINE HYDROCHLORIDE
     Indication: ILL-DEFINED DISORDER
     Dosage: UNK,1?3 TABLETS AT NIGHT
     Route: 065
     Dates: start: 20201001
  2. SIMVASTATIN. [Suspect]
     Active Substance: SIMVASTATIN
     Indication: PRODUCT USED FOR UNKNOWN INDICATION
     Dosage: 40 MILLIGRAM
     Route: 048
     Dates: start: 20200324
  3. ZAPAIN [Concomitant]
     Active Substance: ACETAMINOPHEN\CODEINE PHOSPHATE
     Indication: ILL-DEFINED DISORDER
     Dosage: UNK, QID,TAKE 1 OR 2 4 TIMES/DAY
     Route: 065
     Dates: start: 20210520, end: 20210603
  4. LACTULOSE. [Concomitant]
     Active Substance: LACTULOSE
     Indication: ILL-DEFINED DISORDER
     Dosage: UNK, PRN,15ML TWICE DAILY AS NEEDED
     Route: 065
     Dates: start: 20210520, end: 20210530
  5. SALBUTAMOL [Concomitant]
     Active Substance: ALBUTEROL
     Indication: ILL-DEFINED DISORDER
     Dosage: UNK, PRN,INHALE 2 DOSES AS NEEDED
     Dates: start: 20180322
  6. BISACODYL. [Concomitant]
     Active Substance: BISACODYL
     Indication: CONSTIPATION
     Dosage: UNK, PRN,2 AT NIGHT AS NEEDED
     Route: 065
     Dates: start: 20210520, end: 20210617
  7. ROSUVASTATIN. [Concomitant]
     Active Substance: ROSUVASTATIN
     Indication: ILL-DEFINED DISORDER
     Dosage: UNK, QD (TAKE ONE DAILY )
     Route: 065
     Dates: start: 20200324
  8. PANTOPRAZOL [Concomitant]
     Active Substance: PANTOPRAZOLE SODIUM
     Indication: ILL-DEFINED DISORDER
     Dosage: UNK UNK, QD, (ONE DAILY)
     Route: 065
     Dates: start: 20190610
  9. RELVAR ELLIPTA [Concomitant]
     Active Substance: FLUTICASONE FUROATE\VILANTEROL TRIFENATATE
     Indication: ILL-DEFINED DISORDER
     Dosage: UNK UNK, QD (INHALE 1 DOSE DAILY )
     Dates: start: 20210614
  10. ROPINIROLE. [Concomitant]
     Active Substance: ROPINIROLE
     Indication: ILL-DEFINED DISORDER
     Dosage: UNK,3 AT NIGHT
     Route: 065
     Dates: start: 20181120
  11. BUDESONIDE. [Concomitant]
     Active Substance: BUDESONIDE
     Indication: ILL-DEFINED DISORDER
     Dosage: UNK UNK, BID (TAKE ONE PUFFTWICE DAILY )
     Route: 065
     Dates: start: 20160919

REACTIONS (1)
  - Arthralgia [Recovering/Resolving]

NARRATIVE: CASE EVENT DATE: 20210623
